FAERS Safety Report 10203318 (Version 3)
Quarter: 2014Q3

REPORT INFORMATION
  Report Type: Report from Study
  Country: AU (occurrence: AU)
  Receive Date: 20140529
  Receipt Date: 20140926
  Transmission Date: 20150326
  Serious: Yes (Hospitalization, Other)
  Sender: FDA-Public Use
  Company Number: PHHY2014AU059839

PATIENT
  Age: 74 Year
  Sex: Male
  Weight: 78.1 kg

DRUGS (7)
  1. CARTIA                                  /AUS/ [Suspect]
     Active Substance: ASPIRIN
     Indication: MYELOFIBROSIS
     Dosage: 100 MG, UNK
     Route: 048
     Dates: start: 20100608
  2. ADALAT [Concomitant]
     Active Substance: NIFEDIPINE
     Indication: HYPERTENSION
     Dosage: 60 MG, QD
     Route: 048
  3. THIAZIDE [Concomitant]
     Active Substance: UNSPECIFIED INGREDIENT
     Dosage: UNK UKN, UNK
  4. HYDROXYUREA. [Suspect]
     Active Substance: HYDROXYUREA
     Indication: MYELOFIBROSIS
     Dosage: 500 MG, MONDAY TO FRIDAY
     Route: 048
     Dates: start: 20100608, end: 20140603
  5. DANAZOL. [Suspect]
     Active Substance: DANAZOL
     Indication: MYELOFIBROSIS
     Dosage: 400 MG, QD
     Route: 048
     Dates: start: 20100608
  6. ACE INHIBITORS [Concomitant]
     Active Substance: UNSPECIFIED INGREDIENT
     Dosage: UNK UKN, UNK
  7. EXJADE [Suspect]
     Active Substance: DEFERASIROX
     Indication: MYELOFIBROSIS
     Dosage: 500 MG, DAILY
     Dates: start: 20130129, end: 20140501

REACTIONS (17)
  - Splenomegaly [Recovering/Resolving]
  - Anisocytosis [Unknown]
  - Nephrolithiasis [Recovering/Resolving]
  - Diabetes mellitus [Unknown]
  - Urinary tract obstruction [Unknown]
  - Starvation [Recovering/Resolving]
  - Weight decreased [Recovering/Resolving]
  - Poikilocytosis [Unknown]
  - Night sweats [Recovering/Resolving]
  - Cachexia [Unknown]
  - Blood creatinine increased [Unknown]
  - Body mass index abnormal [Unknown]
  - Benign prostatic hyperplasia [Recovering/Resolving]
  - Renal impairment [Recovering/Resolving]
  - Fatigue [Recovering/Resolving]
  - Blood count abnormal [Unknown]
  - Haemochromatosis [Unknown]

NARRATIVE: CASE EVENT DATE: 201303
